FAERS Safety Report 4881414-2 (Version None)
Quarter: 2005Q4

REPORT INFORMATION
  Report Type: 
  Country: None (occurrence: None)
  Receive Date: 20051201
  Receipt Date: 20050724
  Transmission Date: 20060501
  Serious: No
  Sender: FDA-Public Use
  Company Number: 2005PV000637

PATIENT
  Age: 77 Year
  Sex: Male
  Weight: 83.0083 kg

DRUGS (7)
  1. BYETTA [Suspect]
     Indication: DIABETES MELLITUS NON-INSULIN-DEPENDENT
     Dosage: 5 MCG;BID;SC
     Route: 058
     Dates: start: 20050717
  2. GLYBURIDE [Concomitant]
  3. ACTOS [Concomitant]
  4. NEXIUM [Concomitant]
  5. ACE INHIBITOR NOS [Concomitant]
  6. COREG [Concomitant]
  7. LANTUS [Concomitant]

REACTIONS (4)
  - BLOOD GLUCOSE DECREASED [None]
  - BLOOD GLUCOSE INCREASED [None]
  - COLD SWEAT [None]
  - NAUSEA [None]
